FAERS Safety Report 10036461 (Version 7)
Quarter: 2015Q2

REPORT INFORMATION
  Report Type: Spontaneous
  Country: US (occurrence: US)
  Receive Date: 20140326
  Receipt Date: 20150626
  Transmission Date: 20150821
  Serious: Yes (Hospitalization, Other)
  Sender: FDA-Public Use
  Company Number: US-UCBSA-114835

PATIENT
  Age: 68 Year
  Sex: Male
  Weight: 61.2 kg

DRUGS (10)
  1. ACUPRIL [Concomitant]
     Dosage: UNK, ONCE DAILY (QD)
  2. LAMICTAL [Concomitant]
     Active Substance: LAMOTRIGINE
     Dosage: UNK, ONCE DAILY (QD)
  3. CALCIUM [Concomitant]
     Active Substance: CALCIUM
     Dosage: UNK, ONCE DAILY (QD)
  4. LIPITOR [Concomitant]
     Active Substance: ATORVASTATIN CALCIUM
     Dosage: UNK, ONCE DAILY (QD)
  5. KEPPRA XR [Suspect]
     Active Substance: LEVETIRACETAM
     Indication: EPILEPSY
     Dosage: 750 MG, 2X/DAY (BID); STARTED 7-8 YEARS AGO, LOT:117787,EXPIRATION DATE: 31-OCT-2016
  6. KEPPRA XR [Suspect]
     Active Substance: LEVETIRACETAM
     Indication: SEIZURE
  7. CLORAZEPATE [Concomitant]
     Active Substance: CLORAZEPATE DIPOTASSIUM
     Dosage: UNK, ONCE DAILY (QD)
  8. SYNTHROID [Concomitant]
     Active Substance: LEVOTHYROXINE SODIUM
     Dosage: UNK, ONCE DAILY (QD)
  9. PRIMIDONE. [Concomitant]
     Active Substance: PRIMIDONE
     Dosage: UNK, ONCE DAILY (QD)
  10. VITAMIN D3 [Concomitant]
     Active Substance: CHOLECALCIFEROL
     Dosage: UNK, ONCE DAILY (QD), DOSE PER INTAKE: 1000

REACTIONS (7)
  - Post procedural complication [Recovered/Resolved]
  - Dyspnoea [Recovered/Resolved]
  - Upper respiratory tract infection [Recovered/Resolved]
  - Pharyngeal oedema [Recovered/Resolved]
  - Inappropriate schedule of drug administration [Unknown]
  - Stress [Not Recovered/Not Resolved]
  - Thyroid cancer [Recovering/Resolving]

NARRATIVE: CASE EVENT DATE: 2014
